FAERS Safety Report 5286766-X (Version None)
Quarter: 2007Q1

REPORT INFORMATION
  Report Type: 
  Country: None (occurrence: None)
  Receive Date: 20070329
  Receipt Date: 20070314
  Transmission Date: 20070707
  Serious: Yes (Hospitalization, Other)
  Sender: FDA-Public Use
  Company Number: 112209ISR

PATIENT
  Age: 42 Year
  Sex: Male

DRUGS (3)
  1. METRONIDAZOLE [Suspect]
     Indication: HELICOBACTER INFECTION
     Dosage: 400 MG
  2. LANSOPRAZOLE [Concomitant]
  3. AMOXICILLIN [Concomitant]

REACTIONS (1)
  - MENINGITIS ASEPTIC [None]
